FAERS Safety Report 8113184-9 (Version None)
Quarter: 2012Q1

REPORT INFORMATION
  Report Type: 
  Country: None (occurrence: None)
  Receive Date: 20120203
  Receipt Date: 20120123
  Transmission Date: 20120608
  Serious: Yes (Other)
  Sender: FDA-Public Use
  Company Number: PHHY2011DE107686

PATIENT

DRUGS (6)
  1. CLOZAPINE [Suspect]
     Dosage: 275 MG, UNK
     Route: 064
  2. HALDOL [Concomitant]
     Dosage: 12.5 MG, QD
     Dates: start: 20110730
  3. HALDOL [Concomitant]
     Dosage: 10 MG, QD
     Dates: start: 20110802
  4. HALDOL [Concomitant]
     Dosage: 7.5 MG, QD
     Route: 064
     Dates: start: 20110808
  5. HALDOL [Concomitant]
     Dosage: 15 MG, DAILY
  6. HALDOL [Concomitant]
     Dosage: 15 MG, QD
     Dates: start: 20110723

REACTIONS (2)
  - FOETAL GROWTH RESTRICTION [None]
  - FOETAL EXPOSURE DURING PREGNANCY [None]
